FAERS Safety Report 22316703 (Version 1)
Quarter: 2023Q2

REPORT INFORMATION
  Report Type: Spontaneous
  Country: US (occurrence: None)
  Receive Date: 20230514
  Receipt Date: 20230514
  Transmission Date: 20230721
  Serious: No
  Sender: FDA-Public Use
  Company Number: 2023A101752

PATIENT
  Sex: Male
  Weight: 101.2 kg

DRUGS (1)
  1. BYETTA [Suspect]
     Active Substance: EXENATIDE
     Route: 058
     Dates: start: 2005

REACTIONS (7)
  - Appetite disorder [Recovered/Resolved]
  - Weight fluctuation [Recovered/Resolved]
  - Nausea [Recovered/Resolved]
  - Drug dose omission by device [Unknown]
  - Device issue [Unknown]
  - Product dose omission in error [Unknown]
  - Intentional device use issue [Unknown]
